FAERS Safety Report 14853208 (Version 4)
Quarter: 2019Q2

REPORT INFORMATION
  Report Type: Spontaneous
  Country: US (occurrence: US)
  Receive Date: 20180507
  Receipt Date: 20190417
  Transmission Date: 20190711
  Serious: No
  Sender: FDA-Public Use
  Company Number: US-PFIZER INC-2018184556

PATIENT
  Age: 53 Year
  Sex: Male
  Weight: 104 kg

DRUGS (1)
  1. NORPACE CR [Suspect]
     Active Substance: DISOPYRAMIDE PHOSPHATE
     Indication: HYPERTROPHIC CARDIOMYOPATHY
     Dosage: 300 MG, 2X/DAY [2 CAPSULES]
     Route: 048
     Dates: start: 2017

REACTIONS (1)
  - Product dispensing error [Unknown]
